FAERS Safety Report 20536398 (Version 1)
Quarter: 2022Q1

REPORT INFORMATION
  Report Type: Spontaneous
  Country: GB (occurrence: GB)
  Receive Date: 20220302
  Receipt Date: 20220302
  Transmission Date: 20220424
  Serious: Yes (Other)
  Sender: FDA-Public Use
  Company Number: GB-AMGEN-GBRSP2022024086

PATIENT
  Sex: Male
  Weight: 63.8 kg

DRUGS (12)
  1. VECTIBIX [Suspect]
     Active Substance: PANITUMUMAB
     Indication: Colorectal cancer metastatic
     Dosage: 6 MILLIGRAM/KILOGRAM,  (400MG- 63.8KG)
     Route: 042
     Dates: start: 20210924, end: 20220209
  2. VECTIBIX [Suspect]
     Active Substance: PANITUMUMAB
     Dosage: 400MG
     Route: 042
     Dates: start: 20211007
  3. VECTIBIX [Suspect]
     Active Substance: PANITUMUMAB
     Dosage: 400MG
     Route: 042
     Dates: start: 20211021
  4. VECTIBIX [Suspect]
     Active Substance: PANITUMUMAB
     Dosage: 400MG
     Route: 042
     Dates: start: 20211104
  5. VECTIBIX [Suspect]
     Active Substance: PANITUMUMAB
     Dosage: 100MG
     Route: 042
     Dates: start: 20211118
  6. VECTIBIX [Suspect]
     Active Substance: PANITUMUMAB
     Dosage: 100MG
     Route: 042
     Dates: start: 20211118
  7. VECTIBIX [Suspect]
     Active Substance: PANITUMUMAB
     Dosage: 400MG
     Route: 042
     Dates: start: 20211202
  8. VECTIBIX [Suspect]
     Active Substance: PANITUMUMAB
     Dosage: 400MG
     Route: 042
     Dates: start: 20211216
  9. VECTIBIX [Suspect]
     Active Substance: PANITUMUMAB
     Dosage: 400MG
     Route: 042
     Dates: start: 20211230
  10. VECTIBIX [Suspect]
     Active Substance: PANITUMUMAB
     Dosage: 400MG
     Route: 042
     Dates: start: 20220113
  11. VECTIBIX [Suspect]
     Active Substance: PANITUMUMAB
     Dosage: 400MG
     Route: 042
     Dates: start: 20220127
  12. ENCORAFENIB [Concomitant]
     Active Substance: ENCORAFENIB
     Indication: Product used for unknown indication
     Dosage: UNK

REACTIONS (1)
  - Colorectal cancer metastatic [Unknown]
